FAERS Safety Report 5840385-2 (Version None)
Quarter: 2008Q3

REPORT INFORMATION
  Report Type: 
  Country: None (occurrence: None)
  Receive Date: 20080811
  Receipt Date: 20080730
  Transmission Date: 20090109
  Serious: Yes (Other)
  Sender: FDA-Public Use
  Company Number: CH-PURDUE-DEU_2008_0004536

PATIENT
  Age: 49 Year
  Sex: Female
  Weight: 55 kg

DRUGS (11)
  1. MST RETARD-GRANULAT [Suspect]
     Indication: DRUG USE FOR UNKNOWN INDICATION
     Dosage: 200 MG, DAILY
     Route: 048
     Dates: start: 20080710
  2. KALETRA [Concomitant]
  3. ZIAGEN [Concomitant]
  4. 3TC [Concomitant]
  5. TOREM [Concomitant]
  6. ACIDUM FOLICUM STREULI [Concomitant]
  7. DIPIPERON [Concomitant]
  8. CYMEVENE FOR INJECTION [Concomitant]
  9. AUGMENTIN '125' [Concomitant]
  10. OXAZEPAM [Concomitant]
  11. FRAGMIN [Concomitant]

REACTIONS (1)
  - MEGACOLON [None]
